FAERS Safety Report 23455069 (Version 2)
Quarter: 2024Q1

REPORT INFORMATION
  Report Type: Spontaneous
  Country: DE (occurrence: DE)
  Receive Date: 20240130
  Receipt Date: 20240214
  Transmission Date: 20240410
  Serious: Yes (Death, Hospitalization, Other)
  Sender: FDA-Public Use
  Company Number: DE-SAMSUNG BIOEPIS-SB-2024-03264

PATIENT
  Age: 76 Year
  Sex: Female
  Weight: 76 kg

DRUGS (14)
  1. TRASTUZUMAB [Suspect]
     Active Substance: TRASTUZUMAB
     Indication: Oesophageal adenocarcinoma
     Dosage: D1: 8 MG/KG, IV, 6 MG/ KG, D22/D43 PRE-AND POST-OP, AFTERWARDS 6 MG/KG IV D1 Q3W
     Route: 042
     Dates: start: 20230705, end: 20230705
  2. TRASTUZUMAB [Suspect]
     Active Substance: TRASTUZUMAB
     Dosage: D1: 8 MG/KG, IV, 6 MG/ KG, D22/D43 PRE-AND POST-OP, AFTERWARDS 6 MG/KG IV D1 Q3W
     Route: 042
     Dates: start: 20230823, end: 20230823
  3. PEMBROLIZUMAB [Suspect]
     Active Substance: PEMBROLIZUMAB
     Indication: Oesophageal adenocarcinoma
     Dosage: 200 MG FLAT DOSE, IV, D1/D22/D43 PRE-AND POST-OP, AFTERWARDS D1 Q3W
     Route: 042
     Dates: start: 20230705, end: 20230705
  4. PEMBROLIZUMAB [Suspect]
     Active Substance: PEMBROLIZUMAB
     Dosage: 200 MG FLAT DOSE, IV, D1/D22/D43 PRE-AND POST-OP, AFTERWARDS D1 Q3W
     Route: 042
     Dates: start: 20230823, end: 20230823
  5. OXALIPLATIN [Suspect]
     Active Substance: OXALIPLATIN
     Indication: Oesophageal adenocarcinoma
     Dosage: 85 MG/M2, IV, D1/D15/D29 AND D43 PRE-AND POST-OP
     Route: 042
     Dates: start: 20230705, end: 20230705
  6. OXALIPLATIN [Suspect]
     Active Substance: OXALIPLATIN
     Dosage: 85 MG/M2, IV, D1/D15/D29 AND D43 PRE-AND POST-OP
     Route: 042
     Dates: start: 20230823, end: 20230823
  7. LEUCOVORIN [Suspect]
     Active Substance: LEUCOVORIN\LEUCOVORIN CALCIUM
     Indication: Oesophageal adenocarcinoma
     Dosage: 200 MG/M2, IV, D1/D15/D29 AND D43 PRE-AND POST-OP
     Route: 042
     Dates: start: 20230705, end: 20230705
  8. LEUCOVORIN [Suspect]
     Active Substance: LEUCOVORIN\LEUCOVORIN CALCIUM
     Dosage: 200 MG/M2, IV, D1/D15/D29 AND D43 PRE-AND POST-OP
     Route: 042
     Dates: start: 20230823, end: 20230823
  9. FLUOROURACIL [Suspect]
     Active Substance: FLUOROURACIL
     Indication: Oesophageal adenocarcinoma
     Dosage: 2600 MG/M2, IV, D1/D15/D29 AND D43 PRE-AND POST-OP
     Route: 042
     Dates: start: 20230705, end: 20230705
  10. FLUOROURACIL [Suspect]
     Active Substance: FLUOROURACIL
     Dosage: 2600 MG/M2, IV, D1/D15/D29 AND D43 PRE-AND POST-OP
     Route: 042
     Dates: start: 20230823, end: 20230823
  11. DOCETAXEL [Suspect]
     Active Substance: DOCETAXEL\DOCETAXEL ANHYDROUS
     Indication: Oesophageal adenocarcinoma
     Dosage: 50 MG/M2, IV, D1/D15/D29 AND D43 PRE-AND POST-OP
     Route: 042
     Dates: start: 20230705, end: 20230705
  12. HUMALOG [Concomitant]
     Active Substance: INSULIN LISPRO
     Indication: Hyperglycaemia
     Route: 065
  13. TOUJEO [Concomitant]
     Active Substance: INSULIN GLARGINE
     Indication: Hyperglycaemia
     Route: 065
  14. LEVOTHYROXINE SODIUM [Concomitant]
     Active Substance: LEVOTHYROXINE SODIUM
     Indication: Hypothyroidism
     Route: 065

REACTIONS (4)
  - Septic shock [Fatal]
  - General physical health deterioration [Fatal]
  - Neuroendocrine tumour [Not Recovered/Not Resolved]
  - Product use in unapproved indication [Unknown]

NARRATIVE: CASE EVENT DATE: 20231020
